FAERS Safety Report 21242677 (Version 1)
Quarter: 2022Q3

REPORT INFORMATION
  Report Type: Spontaneous
  Country: CA (occurrence: CA)
  Receive Date: 20220823
  Receipt Date: 20220823
  Transmission Date: 20221027
  Serious: Yes (Life-Threatening, Hospitalization)
  Sender: FDA-Public Use
  Company Number: CA-NOVARTISPH-NVSC2022CA186911

PATIENT
  Sex: Female

DRUGS (1)
  1. TOBRADEX [Suspect]
     Active Substance: DEXAMETHASONE\TOBRAMYCIN
     Indication: Eye disorder
     Dosage: UNK

REACTIONS (10)
  - Feeling abnormal [Unknown]
  - Blood pressure increased [Unknown]
  - Muscle tightness [Unknown]
  - Fall [Unknown]
  - Nerve injury [Unknown]
  - Fracture [Unknown]
  - Hypoaesthesia [Unknown]
  - Product dose omission issue [Unknown]
  - Nausea [Unknown]
  - Discomfort [Recovered/Resolved with Sequelae]
